FAERS Safety Report 9303845 (Version 1)
Quarter: 2013Q2

REPORT INFORMATION
  Report Type: Spontaneous
  Country: GB (occurrence: GB)
  Receive Date: 20130522
  Receipt Date: 20130522
  Transmission Date: 20140414
  Serious: Yes (Hospitalization)
  Sender: FDA-Public Use
  Company Number: GB-ASTRAZENECA-2013SE33443

PATIENT
  Age: 48 Year
  Sex: Female

DRUGS (1)
  1. XYLOCAINE WITH ADRENALINE [Suspect]
     Indication: TOOTH EXTRACTION
     Route: 004
     Dates: start: 20130418, end: 20130418

REACTIONS (10)
  - Anxiety [Recovered/Resolved]
  - Feeling hot [Recovered/Resolved]
  - Headache [Recovered/Resolved]
  - Pancreatic disorder [Recovered/Resolved]
  - Speech disorder [Recovered/Resolved]
  - Abdominal pain upper [Recovered/Resolved]
  - Hyperhidrosis [Recovered/Resolved]
  - Syncope [Recovered/Resolved]
  - Dyspnoea [Recovered/Resolved]
  - Vision blurred [Recovered/Resolved]
